APPROVED DRUG PRODUCT: MEPROBAMATE
Active Ingredient: MEPROBAMATE
Strength: 400MG
Dosage Form/Route: TABLET;ORAL
Application: A088011 | Product #001
Applicant: VANGARD LABORATORIES INC DIV MIDWAY MEDICAL CO
Approved: Jul 14, 1982 | RLD: No | RS: No | Type: DISCN